FAERS Safety Report 7753679-0 (Version None)
Quarter: 2011Q3

REPORT INFORMATION
  Report Type: 
  Country: None (occurrence: None)
  Receive Date: 20110915
  Receipt Date: 20110915
  Transmission Date: 20111222
  Serious: Yes (Hospitalization, Other)
  Sender: FDA-Public Use
  Company Number: None

PATIENT
  Sex: Male

DRUGS (1)
  1. LEVOFLOXACIN [Suspect]
     Indication: PNEUMONIA
     Dosage: ONE TABLET
     Route: 048
     Dates: start: 20110228, end: 20110306

REACTIONS (13)
  - PARAESTHESIA [None]
  - HAEMATOCHEZIA [None]
  - ARTHRALGIA [None]
  - CONFUSIONAL STATE [None]
  - FLUSHING [None]
  - HEADACHE [None]
  - PALPITATIONS [None]
  - EPISTAXIS [None]
  - DYSARTHRIA [None]
  - FATIGUE [None]
  - HEART RATE INCREASED [None]
  - DIZZINESS [None]
  - HYPOAESTHESIA [None]
